FAERS Safety Report 22270638 (Version 1)
Quarter: 2023Q2

REPORT INFORMATION
  Report Type: Spontaneous
  Country: GB (occurrence: GB)
  Receive Date: 20230501
  Receipt Date: 20230501
  Transmission Date: 20230721
  Serious: Yes (Hospitalization, Other)
  Sender: FDA-Public Use
  Company Number: GB-MHRA-MED-202304191608384710-DLVPW

PATIENT
  Sex: Female

DRUGS (6)
  1. LIRAGLUTIDE [Suspect]
     Active Substance: LIRAGLUTIDE
     Indication: Product used for unknown indication
     Dosage: 600 ?G, QD
  2. MIRABEGRON [Concomitant]
     Active Substance: MIRABEGRON
     Indication: Product used for unknown indication
     Dosage: UNK
  3. NAPROXEN [Concomitant]
     Active Substance: NAPROXEN
     Indication: Product used for unknown indication
     Dosage: UNK
  4. OMEPRAZOLE [Concomitant]
     Active Substance: OMEPRAZOLE
     Indication: Product used for unknown indication
     Dosage: UNK
  5. OXYBUTYNIN [Concomitant]
     Active Substance: OXYBUTYNIN
     Indication: Product used for unknown indication
     Dosage: UNK
  6. ACETAMINOPHEN [Concomitant]
     Active Substance: ACETAMINOPHEN
     Indication: Product used for unknown indication
     Dosage: UNK

REACTIONS (3)
  - Jaundice [Not Recovered/Not Resolved]
  - Cholecystitis [Not Recovered/Not Resolved]
  - Nausea [Recovering/Resolving]
